FAERS Safety Report 7468972-9 (Version None)
Quarter: 2011Q2

REPORT INFORMATION
  Report Type: 
  Country: None (occurrence: None)
  Receive Date: 20110429
  Receipt Date: 20110428
  Transmission Date: 20111010
  Serious: Yes (Death, Hospitalization, Other)
  Sender: FDA-Public Use
  Company Number: 2011SP004402

PATIENT
  Age: 70 Year
  Sex: Female
  Weight: 40.1 kg

DRUGS (15)
  1. TEMODAL [Suspect]
     Indication: GLIOBLASTOMA MULTIFORME
     Dosage: 100 MG; QD;PO
     Route: 048
     Dates: start: 20101129, end: 20110111
  2. PURSENNID (SENNOSIDE) [Concomitant]
  3. FERROUS CITRATE [Concomitant]
  4. PURSENNID (SENNOSIDE) [Concomitant]
  5. DIAZEPAM [Concomitant]
  6. NAVOBAN [Concomitant]
  7. MAGNESIUM SULFATE [Concomitant]
  8. TEGRETOL [Concomitant]
  9. FAMOTIDINE [Concomitant]
  10. PRIMPERAN TAB [Concomitant]
  11. MIYA BM [Concomitant]
  12. PREDNISOLONE [Concomitant]
  13. PAXIL [Concomitant]
  14. RADOPTHERAPY [Concomitant]
  15. COTRIM [Concomitant]

REACTIONS (7)
  - FEBRILE NEUTROPENIA [None]
  - RASH [None]
  - LYMPHOCYTE COUNT DECREASED [None]
  - ANAEMIA [None]
  - PLATELET COUNT DECREASED [None]
  - MULTI-ORGAN FAILURE [None]
  - WHITE BLOOD CELL COUNT DECREASED [None]
